FAERS Safety Report 5466171-3 (Version None)
Quarter: 2007Q3

REPORT INFORMATION
  Report Type: 
  Country: None (occurrence: None)
  Receive Date: 20070924
  Receipt Date: 20070912
  Transmission Date: 20080115
  Serious: Yes (Other)
  Sender: FDA-Public Use
  Company Number: DE-PFIZER INC-2007066210

PATIENT
  Sex: Male
  Weight: 90 kg

DRUGS (9)
  1. CHAMPIX [Suspect]
     Indication: EX-SMOKER
     Dosage: DAILY DOSE:.5MG
     Route: 048
     Dates: start: 20070313, end: 20070317
  2. TROMETAMOL [Concomitant]
  3. LYRICA [Concomitant]
  4. ANTIDEPRESSANTS [Concomitant]
  5. HYDROMORPHONE HYDROCHLORIDE [Concomitant]
     Indication: PAIN IN EXTREMITY
     Route: 048
     Dates: start: 20070417, end: 20070503
  6. OPIOIDS [Concomitant]
  7. PALLADON [Concomitant]
     Route: 048
  8. TRAMADOL HCL [Concomitant]
  9. VALORON N [Concomitant]

REACTIONS (2)
  - GAMMA-GLUTAMYLTRANSFERASE INCREASED [None]
  - NAUSEA [None]
